FAERS Safety Report 9677939 (Version 2)
Quarter: 2013Q4

REPORT INFORMATION
  Report Type: Report from Study
  Country: CA (occurrence: CA)
  Receive Date: 20131108
  Receipt Date: 20131125
  Transmission Date: 20140711
  Serious: Yes (Other)
  Sender: FDA-Public Use
  Company Number: CA-JNJFOC-20131100897

PATIENT
  Age: 65 Year
  Sex: Female
  Weight: 110 kg

DRUGS (12)
  1. REMICADE [Suspect]
     Indication: ANKYLOSING SPONDYLITIS
     Route: 042
     Dates: start: 20130528
  2. REMICADE [Suspect]
     Indication: ANKYLOSING SPONDYLITIS
     Route: 042
     Dates: start: 20131031, end: 20131031
  3. GRAVOL [Concomitant]
     Indication: PREMEDICATION
     Route: 048
  4. FOLIC ACID [Concomitant]
     Route: 065
  5. METHOTREXATE [Concomitant]
     Route: 058
  6. PANTOLOC [Concomitant]
     Route: 065
  7. VOLTAREN [Concomitant]
     Route: 061
  8. CYMBALTA [Concomitant]
     Route: 065
  9. PAROXETINE [Concomitant]
     Route: 065
  10. HUMALOG [Concomitant]
     Route: 058
  11. TENORMIN [Concomitant]
     Route: 065
  12. NORVASC [Concomitant]
     Route: 065

REACTIONS (7)
  - Vomiting [Unknown]
  - Infusion related reaction [Unknown]
  - Choking sensation [Unknown]
  - Hyperhidrosis [Unknown]
  - Pruritus [Unknown]
  - Nausea [Unknown]
  - Gastrointestinal disorder [Unknown]
